FAERS Safety Report 10507573 (Version 3)
Quarter: 2015Q1

REPORT INFORMATION
  Report Type: Spontaneous
  Country: US (occurrence: US)
  Receive Date: 20141009
  Receipt Date: 20150205
  Transmission Date: 20150720
  Serious: No
  Sender: FDA-Public Use
  Company Number: US-PFIZER INC-2014274514

PATIENT
  Age: 54 Year
  Sex: Male

DRUGS (1)
  1. SUTENT [Suspect]
     Active Substance: SUNITINIB MALATE
     Indication: RENAL CANCER
     Dosage: 25 MG, 1X/DAY
     Route: 048
     Dates: start: 20140910

REACTIONS (5)
  - Skin sensitisation [Unknown]
  - Dysgeusia [Unknown]
  - Pain [Unknown]
  - Pain in extremity [Unknown]
  - Skin exfoliation [Unknown]

NARRATIVE: CASE EVENT DATE: 20141003
